FAERS Safety Report 17479070 (Version 1)
Quarter: 2020Q1

REPORT INFORMATION
  Report Type: Report from Study
  Country: JP (occurrence: JP)
  Receive Date: 20200228
  Receipt Date: 20200228
  Transmission Date: 20200409
  Serious: Yes (Other)
  Sender: FDA-Public Use
  Company Number: JP-BAUSCH-BL-2020-005331

PATIENT
  Sex: Female

DRUGS (1)
  1. DEMSER [Suspect]
     Active Substance: METYROSINE
     Indication: BLOOD CATECHOLAMINES INCREASED
     Route: 048

REACTIONS (3)
  - Parkinson^s disease [Recovered/Resolved]
  - Psychotic disorder [Unknown]
  - Renal impairment [Unknown]
